FAERS Safety Report 10047638 (Version 1)
Quarter: 2014Q1

REPORT INFORMATION
  Report Type: Spontaneous
  Country: GB (occurrence: GB)
  Receive Date: 20140331
  Receipt Date: 20140331
  Transmission Date: 20141002
  Serious: Yes (Other)
  Sender: FDA-Public Use
  Company Number: GB-PFIZER INC-2014087020

PATIENT
  Age: 19 Year
  Sex: Male
  Weight: 17.6 kg

DRUGS (15)
  1. PREGABALIN [Suspect]
     Dosage: UNK
     Dates: start: 20140307
  2. AMITRIPTYLINE HYDROCHLORIDE [Concomitant]
     Dosage: UNK
     Dates: start: 20131213, end: 20131227
  3. AMITRIPTYLINE HYDROCHLORIDE [Concomitant]
     Dosage: UNK
     Dates: start: 20140103, end: 20140123
  4. AMITRIPTYLINE HYDROCHLORIDE [Concomitant]
     Dosage: UNK
     Dates: start: 20140228
  5. CO-CODAMOL [Concomitant]
     Dosage: UNK
     Dates: start: 20140305, end: 20140313
  6. CODEINE PHOSPHATE [Concomitant]
     Dosage: UNK
     Dates: start: 20131213, end: 20131225
  7. CODEINE PHOSPHATE [Concomitant]
     Dosage: UNK
     Dates: start: 20140103, end: 20140121
  8. CODEINE PHOSPHATE [Concomitant]
     Dosage: UNK
     Dates: start: 20140228, end: 20140312
  9. GABAPENTIN [Concomitant]
     Dosage: UNK
     Dates: start: 20140305
  10. LANSOPRAZOLE [Concomitant]
     Dosage: UNK
     Dates: start: 20131204, end: 20140101
  11. LANSOPRAZOLE [Concomitant]
     Dosage: UNK
     Dates: start: 20140103, end: 20140206
  12. LANSOPRAZOLE [Concomitant]
     Dosage: UNK
     Dates: start: 20140228
  13. NAPROXEN [Concomitant]
     Dosage: UNK
     Dates: start: 20140103, end: 20140206
  14. NAPROXEN [Concomitant]
     Dosage: UNK
     Dates: start: 20140228
  15. TRAMADOL [Concomitant]
     Dosage: UNK
     Dates: start: 20140305

REACTIONS (6)
  - Swelling face [Recovering/Resolving]
  - Lip swelling [Recovering/Resolving]
  - Eye swelling [Recovering/Resolving]
  - Tremor [Recovering/Resolving]
  - Chills [Recovering/Resolving]
  - Dizziness [Recovering/Resolving]
